FAERS Safety Report 6064112-1 (Version None)
Quarter: 2009Q1

REPORT INFORMATION
  Report Type: 
  Country: None (occurrence: None)
  Receive Date: 20090204
  Receipt Date: 20090123
  Transmission Date: 20090719
  Serious: Yes (Other)
  Sender: FDA-Public Use
  Company Number: NL-PFIZER INC-2008093787

PATIENT

DRUGS (3)
  1. ECALTA [Suspect]
     Indication: SYSTEMIC CANDIDA
  2. ECALTA [Suspect]
     Indication: CANDIDIASIS
  3. AUGMENTIN '125' [Suspect]

REACTIONS (3)
  - BACTERIAL INFECTION [None]
  - BLOOD CREATININE INCREASED [None]
  - TUBULOINTERSTITIAL NEPHRITIS [None]
